FAERS Safety Report 6088761-X (Version None)
Quarter: 2009Q1

REPORT INFORMATION
  Report Type: 
  Country: None (occurrence: None)
  Receive Date: 20090218
  Receipt Date: 20090218
  Transmission Date: 20090719
  Serious: No
  Sender: FDA-Public Use
  Company Number: None

PATIENT
  Age: 80 Year
  Sex: Female
  Weight: 52.1637 kg

DRUGS (2)
  1. REGLAN [Suspect]
     Indication: GASTROOESOPHAGEAL REFLUX DISEASE
     Dates: start: 20060303, end: 20070603
  2. REGLAN [Suspect]
     Indication: NAUSEA
     Dates: start: 20060303, end: 20070603

REACTIONS (6)
  - DYSPHAGIA [None]
  - ILL-DEFINED DISORDER [None]
  - MUSCLE RIGIDITY [None]
  - SPEECH DISORDER [None]
  - STARING [None]
  - TREMOR [None]
